FAERS Safety Report 6665391-X (Version None)
Quarter: 2010Q2

REPORT INFORMATION
  Report Type: 
  Country: None (occurrence: None)
  Receive Date: 20100402
  Receipt Date: 20100324
  Transmission Date: 20101027
  Serious: Yes (Hospitalization)
  Sender: FDA-Public Use
  Company Number: FR-PFIZER INC-2010038178

PATIENT
  Age: 78 Year
  Sex: Male

DRUGS (6)
  1. ALDACTONE [Suspect]
     Dosage: 75 MG, 1X/DAY
     Route: 048
     Dates: end: 20100218
  2. AVLOCARDYL [Concomitant]
  3. NEXIUM [Concomitant]
  4. LANTUS [Concomitant]
  5. NOVORAPID [Concomitant]
  6. NOROXIN [Concomitant]

REACTIONS (1)
  - HEPATIC ENCEPHALOPATHY [None]
